FAERS Safety Report 7689649-0 (Version None)
Quarter: 2011Q3

REPORT INFORMATION
  Report Type: 
  Country: None (occurrence: None)
  Receive Date: 20110817
  Receipt Date: 20110811
  Transmission Date: 20111222
  Serious: Yes (Other)
  Sender: FDA-Public Use
  Company Number: BR-ROCHE-796502

PATIENT
  Sex: Female

DRUGS (3)
  1. TOCILIZUMAB [Suspect]
     Dosage: FORM : INFUSION , THIRD INFUSION
     Route: 042
  2. TOCILIZUMAB [Suspect]
     Route: 042
  3. TOCILIZUMAB [Suspect]
     Route: 042

REACTIONS (1)
  - VASCULITIS [None]
